FAERS Safety Report 9454225 (Version 2)
Quarter: 2013Q3

REPORT INFORMATION
  Report Type: Spontaneous
  Country: US (occurrence: US)
  Receive Date: 20130812
  Receipt Date: 20130910
  Transmission Date: 20140515
  Serious: Yes (Other)
  Sender: FDA-Public Use
  Company Number: US-PFIZER INC-2013232912

PATIENT
  Age: 37 Year
  Sex: Female

DRUGS (8)
  1. XELJANZ [Suspect]
     Indication: RHEUMATOID ARTHRITIS
     Dosage: 5 MG, 2X/DAY
     Route: 048
     Dates: start: 20130107, end: 20130524
  2. XELJANZ [Suspect]
     Dosage: 5 MG, 2X/DAY
     Route: 048
     Dates: start: 20130620
  3. CELEBREX [Concomitant]
     Dosage: 100 MG,
  4. PREDNISONE [Concomitant]
     Dosage: 1 MG
  5. ALLEGRA [Concomitant]
     Dosage: 180 MG
  6. PROCHLORPERAZINE [Concomitant]
     Dosage: 5 MG,
  7. ZOFRAN [Concomitant]
     Dosage: 4 MG,
  8. BIOTIN [Concomitant]
     Dosage: 5000 UG,

REACTIONS (4)
  - Staphylococcal infection [Recovered/Resolved]
  - Rash [Recovered/Resolved]
  - Gastroenteritis viral [Recovered/Resolved]
  - Sinusitis [Recovered/Resolved]
